FAERS Safety Report 8112419-6 (Version None)
Quarter: 2012Q1

REPORT INFORMATION
  Report Type: 
  Country: None (occurrence: None)
  Receive Date: 20120203
  Receipt Date: 20120123
  Transmission Date: 20120608
  Serious: Yes (Other)
  Sender: FDA-Public Use
  Company Number: US-UCBSA-017865

PATIENT
  Age: 53 Year
  Sex: Female
  Weight: 85.909 kg

DRUGS (12)
  1. PREDNISONE TAB [Concomitant]
     Indication: CROHN'S DISEASE
     Dates: start: 20100414, end: 20100421
  2. ROWASA [Concomitant]
     Indication: CROHN'S DISEASE
     Dates: start: 20010920, end: 20010920
  3. ENTOCORT EC [Concomitant]
     Indication: CROHN'S DISEASE
     Dates: start: 20080316
  4. MULTI-VITAMIN [Concomitant]
  5. ACETAMINOPHEN [Concomitant]
     Indication: CROHN'S DISEASE
  6. AZATHIOPRINE [Concomitant]
     Indication: CROHN'S DISEASE
     Dosage: DISCONTINUED TREATMENT DUE TO INTOLERANCE
     Dates: start: 20080315, end: 20080321
  7. REMICADE [Concomitant]
     Indication: CROHN'S DISEASE
     Dosage: DISCONTINUED DUE TO INTOLERANCE
     Dates: start: 20080415, end: 20091104
  8. CIPROFLOXACIN [Concomitant]
     Indication: CROHN'S DISEASE
     Dosage: DONE WITH PRESCRIBED COURSE
     Dates: start: 20070620, end: 20070620
  9. ZYRTEC [Concomitant]
  10. VITAMIN D [Concomitant]
  11. MESALAMINE [Concomitant]
     Indication: CROHN'S DISEASE
     Dosage: DISCONTINUED DUE TO INTORERANCE
     Dates: start: 20011001, end: 20071001
  12. CIMZIA [Suspect]
     Indication: CROHN'S DISEASE
     Route: 058
     Dates: start: 20100212, end: 20100701

REACTIONS (1)
  - BREAST CANCER METASTATIC [None]
